FAERS Safety Report 8013759-1 (Version None)
Quarter: 2011Q4

REPORT INFORMATION
  Report Type: 
  Country: None (occurrence: None)
  Receive Date: 20111229
  Receipt Date: 20111219
  Transmission Date: 20120403
  Serious: Yes (Hospitalization)
  Sender: FDA-Public Use
  Company Number: DE-ELI_LILLY_AND_COMPANY-DE201112005402

PATIENT
  Sex: Female

DRUGS (8)
  1. PANTOZOL                           /01263202/ [Concomitant]
  2. VALORON [Concomitant]
  3. CALCIUM W/VITAMIN D NOS [Concomitant]
  4. METHOTREXATE [Concomitant]
  5. FOLIC ACID [Concomitant]
  6. FORTEO [Suspect]
     Indication: OSTEOPOROSIS
     Dosage: UNK, QD
     Route: 058
     Dates: start: 20101202
  7. ARCOXIA [Concomitant]
  8. NOVAMINSULFON [Concomitant]
     Dosage: UNK
     Dates: start: 20110801

REACTIONS (1)
  - FOOT OPERATION [None]
